FAERS Safety Report 10183709 (Version 1)
Quarter: 2014Q2

REPORT INFORMATION
  Report Type: Spontaneous
  Country: US (occurrence: US)
  Receive Date: 20140520
  Receipt Date: 20140520
  Transmission Date: 20141212
  Serious: No
  Sender: FDA-Public Use
  Company Number: US-ENDO PHARMACEUTICALS INC.-GILD20130007

PATIENT
  Sex: Female

DRUGS (2)
  1. GILDESS FE 1.5/30 [Suspect]
     Indication: PRODUCT USED FOR UNKNOWN INDICATION
     Dosage: 1.5/35
     Route: 048
     Dates: start: 2012
  2. ETODOLAC [Concomitant]
     Indication: PRODUCT USED FOR UNKNOWN INDICATION
     Dosage: UNK
     Route: 048
     Dates: start: 201305

REACTIONS (1)
  - Metrorrhagia [Not Recovered/Not Resolved]
